FAERS Safety Report 6140651-X (Version None)
Quarter: 2009Q1

REPORT INFORMATION
  Report Type: 
  Country: None (occurrence: None)
  Receive Date: 20090331
  Receipt Date: 20090316
  Transmission Date: 20090719
  Serious: Yes (Death, Hospitalization)
  Sender: FDA-Public Use
  Company Number: 2008001245

PATIENT
  Age: 64 Year
  Sex: Male
  Weight: 49 kg

DRUGS (8)
  1. ERLOTINIB (ERLOTINIB) (TABLET) (ERLOTINIB) [Suspect]
     Indication: NON-SMALL CELL LUNG CANCER
     Dosage: (150 MG, QD), ORAL
     Route: 048
     Dates: start: 20080418, end: 20080425
  2. SU11248 OR PLACEBO [Suspect]
     Dosage: (37.5 MG, QD)
  3. METOCLOPRAMIDE [Concomitant]
  4. LOPERAMIDE [Concomitant]
  5. KYTRIL [Concomitant]
  6. STILNOX (ZOLPIDEM) [Concomitant]
  7. ONDANSETRON HCL [Concomitant]
  8. SMECTITE (SMECTITE) [Concomitant]

REACTIONS (4)
  - ANAEMIA [None]
  - DYSPNOEA [None]
  - HYPOPHAGIA [None]
  - MALIGNANT NEOPLASM PROGRESSION [None]
